FAERS Safety Report 14398285 (Version 1)
Quarter: 2018Q1

REPORT INFORMATION
  Report Type: Report from Study
  Country: US (occurrence: US)
  Receive Date: 20180116
  Receipt Date: 20180116
  Transmission Date: 20180509
  Serious: No
  Sender: FDA-Public Use
  Company Number: US-AMGEN-USASL2018004977

PATIENT
  Age: 48 Year
  Sex: Female

DRUGS (3)
  1. ENBREL [Suspect]
     Active Substance: ETANERCEPT
     Indication: PSORIATIC ARTHROPATHY
     Dosage: 50 MG, QWK
     Route: 065
  2. ENBREL [Suspect]
     Active Substance: ETANERCEPT
     Indication: DRUG THERAPY
  3. ENBREL [Suspect]
     Active Substance: ETANERCEPT
     Indication: POLYARTHRITIS

REACTIONS (4)
  - Injection site erythema [Unknown]
  - Injection site inflammation [Unknown]
  - Injection site swelling [Unknown]
  - Off label use [Unknown]
